FAERS Safety Report 25811000 (Version 1)
Quarter: 2025Q3

REPORT INFORMATION
  Report Type: Spontaneous
  Country: RU (occurrence: RU)
  Receive Date: 20250917
  Receipt Date: 20250917
  Transmission Date: 20251020
  Serious: Yes (Other)
  Sender: ROCHE
  Company Number: RU-ROCHE-10000383850

PATIENT
  Age: 49 Year
  Sex: Female

DRUGS (21)
  1. RITUXIMAB [Suspect]
     Active Substance: RITUXIMAB
     Indication: B-cell lymphoma
     Route: 065
     Dates: start: 20170227, end: 201706
  2. RITUXIMAB [Suspect]
     Active Substance: RITUXIMAB
     Route: 065
     Dates: start: 20211220, end: 202206
  3. PREDNISOLONE [Suspect]
     Active Substance: PREDNISOLONE
     Indication: B-cell lymphoma
     Route: 065
     Dates: start: 20170227, end: 201706
  4. PREDNISOLONE [Suspect]
     Active Substance: PREDNISOLONE
     Route: 065
     Dates: start: 20211220, end: 202206
  5. VINCRISTINE [Suspect]
     Active Substance: VINCRISTINE
     Indication: B-cell lymphoma
     Route: 065
     Dates: start: 20170227, end: 201706
  6. VINCRISTINE [Suspect]
     Active Substance: VINCRISTINE
     Route: 065
     Dates: start: 20211220, end: 202206
  7. CYCLOPHOSPHAMIDE [Suspect]
     Active Substance: CYCLOPHOSPHAMIDE
     Indication: B-cell lymphoma
     Route: 065
     Dates: start: 20170227, end: 201706
  8. DOXORUBICIN [Suspect]
     Active Substance: DOXORUBICIN
     Indication: B-cell lymphoma
     Route: 065
     Dates: start: 20170227, end: 201706
  9. OXALIPLATIN [Concomitant]
     Active Substance: OXALIPLATIN
     Route: 042
     Dates: start: 20230914, end: 20231215
  10. GEMCITABINE [Concomitant]
     Active Substance: GEMCITABINE
     Route: 042
     Dates: start: 20230914, end: 20231215
  11. DEXAMETHASONE [Concomitant]
     Active Substance: DEXAMETHASONE
     Route: 042
     Dates: start: 20230914, end: 20231215
  12. DEXAMETHASONE [Concomitant]
     Active Substance: DEXAMETHASONE
     Route: 042
     Dates: start: 20211217
  13. DEXAMETHASONE [Concomitant]
     Active Substance: DEXAMETHASONE
     Route: 042
     Dates: start: 20220629
  14. METHOTREXATE [Concomitant]
     Active Substance: METHOTREXATE
     Route: 042
     Dates: start: 20211220, end: 202206
  15. ETOPOSIDE [Concomitant]
     Active Substance: ETOPOSIDE
     Route: 048
  16. ETOPOSIDE [Concomitant]
     Active Substance: ETOPOSIDE
     Route: 048
     Dates: start: 20220629
  17. PROCARBAZINE [Concomitant]
     Active Substance: PROCARBAZINE
     Route: 048
  18. BENDAMUSTINE [Concomitant]
     Active Substance: BENDAMUSTINE
     Route: 042
  19. CYTARABINE [Concomitant]
     Active Substance: CYTARABINE
     Route: 042
     Dates: start: 20250729
  20. LOMUSTINE [Concomitant]
     Active Substance: LOMUSTINE
     Route: 048
  21. MELPHALAN [Concomitant]
     Active Substance: MELPHALAN

REACTIONS (1)
  - B-cell lymphoma recurrent [Not Recovered/Not Resolved]

NARRATIVE: CASE EVENT DATE: 20211102
